FAERS Safety Report 21183959 (Version 3)
Quarter: 2022Q3

REPORT INFORMATION
  Report Type: Report from Study
  Country: PK (occurrence: PK)
  Receive Date: 20220808
  Receipt Date: 20220907
  Transmission Date: 20221026
  Serious: Yes (Death)
  Sender: FDA-Public Use
  Company Number: PK-NOVARTISPH-NVSC2022PK178485

PATIENT
  Sex: Female

DRUGS (1)
  1. EXELON [Suspect]
     Active Substance: RIVASTIGMINE TARTRATE
     Indication: Dementia
     Dosage: 9.5 MG, (18MG/10CM) QD (ROUTE: DERMAL, FORMULATION: PATCHES, DOSE:18MG/10CM, FREQUENCY: 1OD)
     Route: 062
     Dates: start: 20200627

REACTIONS (1)
  - Sepsis [Fatal]
